FAERS Safety Report 6427859-0 (Version None)
Quarter: 2009Q4

REPORT INFORMATION
  Report Type: 
  Country: None (occurrence: None)
  Receive Date: 20091104
  Receipt Date: 20091104
  Transmission Date: 20100525
  Serious: No
  Sender: FDA-Public Use
  Company Number: None

PATIENT
  Age: 66 Year
  Sex: Male
  Weight: 98 kg

DRUGS (1)
  1. METFORMIN HCL [Suspect]
     Dosage: 500 MG TID PO
     Route: 048
     Dates: start: 20080228, end: 20090714

REACTIONS (4)
  - BLOOD UREA NITROGEN/CREATININE RATIO INCREASED [None]
  - HYPERGLYCAEMIA [None]
  - MYALGIA [None]
  - SEDATION [None]
